FAERS Safety Report 9663731 (Version 1)
Quarter: 2013Q4

REPORT INFORMATION
  Report Type: Spontaneous
  Country: BR (occurrence: BR)
  Receive Date: 20131101
  Receipt Date: 20131101
  Transmission Date: 20140711
  Serious: No
  Sender: FDA-Public Use
  Company Number: PHHY2013BR121792

PATIENT
  Age: 59 Year
  Sex: Male

DRUGS (2)
  1. ONBREZ [Suspect]
     Indication: EMPHYSEMA
     Dosage: 150 UG, UNK
     Dates: start: 201307
  2. ONBREZ [Suspect]
     Indication: OFF LABEL USE

REACTIONS (3)
  - Malaise [Unknown]
  - Fatigue [Unknown]
  - Hyperhidrosis [Unknown]
